FAERS Safety Report 25647211 (Version 1)
Quarter: 2025Q3

REPORT INFORMATION
  Report Type: Spontaneous
  Country: GB (occurrence: GB)
  Receive Date: 20250806
  Receipt Date: 20250806
  Transmission Date: 20251020
  Serious: Yes (Hospitalization)
  Sender: ACCORD
  Company Number: GB-MLMSERVICE-20250718-PI582356-00165-1

PATIENT
  Age: 8 Decade
  Sex: Male

DRUGS (8)
  1. AMITRIPTYLINE [Suspect]
     Active Substance: AMITRIPTYLINE
     Indication: Product used for unknown indication
  2. GEMCITABINE [Suspect]
     Active Substance: GEMCITABINE
     Indication: Adenocarcinoma pancreas
  3. TAMSULOSIN [Suspect]
     Active Substance: TAMSULOSIN
     Indication: Product used for unknown indication
  4. ABRAXANE [Suspect]
     Active Substance: PACLITAXEL
     Indication: Adenocarcinoma pancreas
  5. GEMCITABINE [Suspect]
     Active Substance: GEMCITABINE
     Indication: Metastases to kidney
  6. ABRAXANE [Suspect]
     Active Substance: PACLITAXEL
     Indication: Splenic infarction
  7. ABRAXANE [Suspect]
     Active Substance: PACLITAXEL
     Indication: Metastases to kidney
  8. GEMCITABINE [Suspect]
     Active Substance: GEMCITABINE
     Indication: Splenic infarction

REACTIONS (3)
  - Orthostatic hypotension [Unknown]
  - Syncope [Unknown]
  - Fall [Unknown]
